FAERS Safety Report 12827879 (Version 2)
Quarter: 2018Q2

REPORT INFORMATION
  Report Type: Report from Study
  Country: US (occurrence: US)
  Receive Date: 20161007
  Receipt Date: 20180508
  Transmission Date: 20180711
  Serious: No
  Sender: FDA-Public Use
  Company Number: GXBR2016US002958

PATIENT
  Age: 62 Year
  Sex: Female
  Weight: 77.98 kg

DRUGS (1)
  1. GLATOPA [Suspect]
     Active Substance: GLATIRAMER ACETATE
     Indication: MULTIPLE SCLEROSIS
     Dosage: 20 MG, QD
     Route: 065
     Dates: start: 20160917

REACTIONS (3)
  - Injection site pain [Unknown]
  - Dysgeusia [Unknown]
  - Device issue [Unknown]

NARRATIVE: CASE EVENT DATE: 20160917
